FAERS Safety Report 18169968 (Version 1)
Quarter: 2020Q3

REPORT INFORMATION
  Report Type: Spontaneous
  Country: US (occurrence: US)
  Receive Date: 20200819
  Receipt Date: 20200819
  Transmission Date: 20201103
  Serious: No
  Sender: FDA-Public Use
  Company Number: None

PATIENT
  Age: 62 Year
  Sex: Male
  Weight: 105.75 kg

DRUGS (5)
  1. BISACODYL. [Suspect]
     Active Substance: BISACODYL
  2. FLOMAX [Concomitant]
     Active Substance: TAMSULOSIN HYDROCHLORIDE
  3. TENORMIN [Concomitant]
     Active Substance: ATENOLOL
  4. PROSCAR [Concomitant]
     Active Substance: FINASTERIDE
  5. MOTRIN [Concomitant]
     Active Substance: IBUPROFEN

REACTIONS (1)
  - Hypertension [None]
